FAERS Safety Report 8814430 (Version 13)
Quarter: 2013Q4

REPORT INFORMATION
  Report Type: Report from Study
  Country: CA (occurrence: CA)
  Receive Date: 20120928
  Receipt Date: 20131125
  Transmission Date: 20140711
  Serious: Yes (Death, Hospitalization, Other)
  Sender: FDA-Public Use
  Company Number: PHHY2012CA073319

PATIENT
  Age: 52 Year
  Sex: Male

DRUGS (3)
  1. SANDOSTATIN LAR [Suspect]
     Indication: THYMOMA
     Dosage: 20 MG, QMO
     Route: 030
     Dates: start: 20120723
  2. SANDOSTATIN LAR [Suspect]
     Dosage: 20 MG, QMO
     Route: 030
     Dates: start: 20130218
  3. METADOL [Concomitant]
     Dosage: UNK UKN, UNK

REACTIONS (19)
  - Death [Fatal]
  - Rib fracture [Unknown]
  - Musculoskeletal chest pain [Unknown]
  - Dyspnoea [Unknown]
  - Bronchitis [Unknown]
  - Fall [Unknown]
  - Metastases to liver [Unknown]
  - Fatigue [Unknown]
  - Blood pressure decreased [Unknown]
  - Pyrexia [Unknown]
  - Nasopharyngitis [Unknown]
  - Cough [Unknown]
  - Anxiety [Unknown]
  - Hyperhidrosis [Recovered/Resolved]
  - Tremor [Unknown]
  - Respiratory rate increased [Unknown]
  - Asthenia [Recovered/Resolved]
  - Dizziness [Recovered/Resolved]
  - Heart rate increased [Unknown]
